FAERS Safety Report 8249567-6 (Version None)
Quarter: 2012Q2

REPORT INFORMATION
  Report Type: 
  Country: None (occurrence: None)
  Receive Date: 20120402
  Receipt Date: 20120323
  Transmission Date: 20120825
  Serious: Yes (Hospitalization, Congenital Anomaly)
  Sender: FDA-Public Use
  Company Number: JP-ASTELLAS-2012JP001580

PATIENT
  Sex: Female
  Weight: 1.842 kg

DRUGS (3)
  1. PROGRAF [Suspect]
     Indication: FOETAL EXPOSURE DURING PREGNANCY
     Route: 064
  2. CANDESARTAN CILEXETIL [Suspect]
     Indication: FOETAL EXPOSURE DURING PREGNANCY
     Dosage: UNK
     Route: 064
     Dates: start: 20100104, end: 20101216
  3. COTRIM [Concomitant]
     Indication: FOETAL EXPOSURE DURING PREGNANCY
     Dosage: UNK
     Route: 064
     Dates: end: 20101216

REACTIONS (4)
  - FOETAL GROWTH RESTRICTION [None]
  - LOW BIRTH WEIGHT BABY [None]
  - NEONATAL RESPIRATORY DISTRESS SYNDROME [None]
  - NEPHROGENIC DIABETES INSIPIDUS [None]
